FAERS Safety Report 5375377-3 (Version None)
Quarter: 2007Q2

REPORT INFORMATION
  Report Type: 
  Country: None (occurrence: None)
  Receive Date: 20070629
  Receipt Date: 20070620
  Transmission Date: 20071010
  Serious: Yes (Death)
  Sender: FDA-Public Use
  Company Number: CA-PFIZER INC-2007011007

PATIENT
  Sex: Male
  Weight: 74 kg

DRUGS (9)
  1. SU-011,248 [Suspect]
     Indication: MESOTHELIOMA
     Route: 048
     Dates: start: 20061129, end: 20070126
  2. PEMETREXED [Suspect]
     Indication: MESOTHELIOMA
     Route: 042
     Dates: start: 20061128, end: 20070118
  3. DILAUDID [Concomitant]
     Route: 048
     Dates: start: 20060601, end: 20070207
  4. NORTRIPTYLINE HCL [Concomitant]
     Route: 048
     Dates: start: 20060201, end: 20070207
  5. FOLIC ACID [Concomitant]
     Route: 048
     Dates: start: 20061122, end: 20070207
  6. HERBAL PREPARATION [Concomitant]
     Route: 048
     Dates: start: 20061201, end: 20070207
  7. MS CONTIN [Concomitant]
     Route: 048
     Dates: start: 20070108, end: 20070207
  8. PROCHLORPERAZINE [Concomitant]
     Route: 048
     Dates: start: 20070201, end: 20070207
  9. FRAGMIN [Concomitant]
     Route: 048
     Dates: start: 20070205, end: 20070207

REACTIONS (1)
  - SUDDEN DEATH [None]
